FAERS Safety Report 20327516 (Version 1)
Quarter: 2022Q1

REPORT INFORMATION
  Report Type: Report from Study
  Country: CA (occurrence: CA)
  Receive Date: 20220112
  Receipt Date: 20220112
  Transmission Date: 20220423
  Serious: Yes (Other)
  Sender: FDA-Public Use
  Company Number: None

PATIENT
  Age: 74 Year
  Sex: Male

DRUGS (9)
  1. MONTELUKAST [Suspect]
     Active Substance: MONTELUKAST SODIUM
     Indication: Product used for unknown indication
     Dosage: 1 EVERY 1 DAYS
  2. PRAVASTATIN SODIUM [Suspect]
     Active Substance: PRAVASTATIN SODIUM
     Indication: Hypercholesterolaemia
     Dosage: 1 EVERY 1 DAYS
  3. CHLORTHALIDONE [Suspect]
     Active Substance: CHLORTHALIDONE
     Indication: Hypertension
     Dosage: 1 EVERY 1 DAYS
  4. FLUTICASONE PROPIONATE\SALMETEROL XINAFOATE [Suspect]
     Active Substance: FLUTICASONE PROPIONATE\SALMETEROL XINAFOATE
     Indication: Chronic obstructive pulmonary disease
  5. MEPOLIZUMAB [Suspect]
     Active Substance: MEPOLIZUMAB
     Indication: Product used for unknown indication
     Route: 042
  6. ALBUTEROL [Suspect]
     Active Substance: ALBUTEROL
     Indication: Product used for unknown indication
  7. SYMBICORT [Suspect]
     Active Substance: BUDESONIDE\FORMOTEROL FUMARATE DIHYDRATE
     Indication: Product used for unknown indication
     Dosage: INHALATION
  8. UMECLIDINIUM [Suspect]
     Active Substance: UMECLIDINIUM
     Indication: Asthma
  9. VENTOLIN [Suspect]
     Active Substance: ALBUTEROL SULFATE
     Indication: Product used for unknown indication

REACTIONS (19)
  - Allergy to animal [Unknown]
  - Aortic dilatation [Unknown]
  - Arthritis [Unknown]
  - Asthma [Unknown]
  - Atelectasis [Unknown]
  - Bronchial wall thickening [Unknown]
  - Bronchiectasis [Unknown]
  - Bronchitis [Unknown]
  - Cholelithiasis [Unknown]
  - Drug hypersensitivity [Unknown]
  - Dust allergy [Unknown]
  - Inflammation [Unknown]
  - Intervertebral disc operation [Unknown]
  - Mycotic allergy [Unknown]
  - Pulmonary mass [Unknown]
  - Renal cyst [Unknown]
  - Rhinitis allergic [Unknown]
  - Seasonal allergy [Unknown]
  - Sleep apnoea syndrome [Unknown]
